FAERS Safety Report 8512718-X (Version None)
Quarter: 2012Q3

REPORT INFORMATION
  Report Type: 
  Country: None (occurrence: None)
  Receive Date: 20120716
  Receipt Date: 20120710
  Transmission Date: 20120928
  Serious: Yes (Hospitalization)
  Sender: FDA-Public Use
  Company Number: US-JNJFOC-20120705545

PATIENT
  Sex: Female
  Weight: 27.7 kg

DRUGS (9)
  1. MESALAMINE [Concomitant]
     Indication: INFLAMMATORY BOWEL DISEASE
     Route: 054
  2. PROBIOTICS [Concomitant]
     Indication: INFLAMMATORY BOWEL DISEASE
  3. CHLORHEXIDINE GLUCONATE [Concomitant]
  4. OMEGA 3 FATTY ACID [Concomitant]
  5. ANTIBIOTICS [Concomitant]
     Indication: INFLAMMATORY BOWEL DISEASE
  6. NITAZOXANIDE [Concomitant]
     Dates: end: 20120301
  7. CHOLECALCIFEROL [Concomitant]
  8. REMICADE [Suspect]
     Indication: CROHN'S DISEASE
     Route: 042
     Dates: start: 20110407
  9. FERROUS SULFATE TAB [Concomitant]

REACTIONS (1)
  - SMALL INTESTINAL OBSTRUCTION [None]
